FAERS Safety Report 25301825 (Version 2)
Quarter: 2025Q2

REPORT INFORMATION
  Report Type: Spontaneous
  Country: US (occurrence: US)
  Receive Date: 20250512
  Receipt Date: 20250512
  Transmission Date: 20250717
  Serious: Yes (Death, Other)
  Sender: BAYER HEALTHCARE LLC
  Company Number: US-BAYER-2025A062239

PATIENT
  Age: 70 Year
  Sex: Male

DRUGS (2)
  1. MICONAZOLE NITRATE [Suspect]
     Active Substance: MICONAZOLE NITRATE
     Dates: start: 1970, end: 2020
  2. TOLNAFTATE [Suspect]
     Active Substance: TOLNAFTATE
     Dates: start: 1970, end: 2020

REACTIONS (3)
  - Sarcomatoid mesothelioma [Fatal]
  - Cardiopulmonary failure [Fatal]
  - Exposure to chemical pollution [None]

NARRATIVE: CASE EVENT DATE: 20240407
